FAERS Safety Report 4324626-9 (Version None)
Quarter: 2004Q1

REPORT INFORMATION
  Report Type: 
  Country: None (occurrence: None)
  Receive Date: 20040323
  Receipt Date: 20040310
  Transmission Date: 20041129
  Serious: Yes (Hospitalization)
  Sender: FDA-Public Use
  Company Number: HQWYE700710MAR04

PATIENT
  Age: 85 Year
  Sex: Male

DRUGS (3)
  1. ANCARON (AMIDARONE, TABLET) [Suspect]
     Dosage: 100 MG 1X PER 1 DAY, ORAL
     Route: 048
  2. LASIX [Concomitant]
  3. DOPAMINE HCL [Concomitant]

REACTIONS (4)
  - DELIRIUM [None]
  - INFECTION [None]
  - MUSCLE CRAMP [None]
  - PNEUMONIA [None]
